FAERS Safety Report 24060740 (Version 2)
Quarter: 2025Q2

REPORT INFORMATION
  Report Type: Spontaneous
  Country: FR (occurrence: FR)
  Receive Date: 20240708
  Receipt Date: 20250514
  Transmission Date: 20250717
  Serious: Yes (Other)
  Sender: PFIZER
  Company Number: FR-VIIV HEALTHCARE ULC-FR2024EME078578

PATIENT
  Age: 25 Year
  Sex: Female

DRUGS (8)
  1. AZITHROMYCIN [Suspect]
     Active Substance: AZITHROMYCIN
     Indication: Mycobacterium avium complex infection
     Dates: start: 20240131
  2. RIFABUTIN [Suspect]
     Active Substance: RIFABUTIN
     Indication: Mycobacterium avium complex infection
     Dates: start: 20240131
  3. ETHAMBUTOL [Suspect]
     Active Substance: ETHAMBUTOL HYDROCHLORIDE
     Indication: Mycobacterium avium complex infection
     Dosage: 1000 MG, QD
  4. ETHAMBUTOL [Suspect]
     Active Substance: ETHAMBUTOL HYDROCHLORIDE
     Dates: start: 20240131
  5. AMIKACIN [Suspect]
     Active Substance: AMIKACIN
     Indication: Mycobacterium avium complex infection
  6. KIVEXA [Suspect]
     Active Substance: ABACAVIR SULFATE\LAMIVUDINE
     Indication: HIV infection
  7. NORVIR [Suspect]
     Active Substance: RITONAVIR
     Indication: HIV infection
  8. PREZISTA [Suspect]
     Active Substance: DARUNAVIR ETHANOLATE
     Indication: HIV infection

REACTIONS (9)
  - Oesophageal candidiasis [Recovering/Resolving]
  - Hydrocephalus [Unknown]
  - Mediastinal mass [Recovering/Resolving]
  - Pulmonary hilum mass [Recovering/Resolving]
  - Hilar lymphadenopathy [Recovering/Resolving]
  - Lymphadenopathy mediastinal [Recovering/Resolving]
  - Inflammation [Recovered/Resolved]
  - Drug monitoring procedure incorrectly performed [Unknown]
  - Exposure during pregnancy [Unknown]
